FAERS Safety Report 7974694-8 (Version None)
Quarter: 2011Q4

REPORT INFORMATION
  Report Type: 
  Country: None (occurrence: None)
  Receive Date: 20111213
  Receipt Date: 20111207
  Transmission Date: 20120403
  Serious: No
  Sender: FDA-Public Use
  Company Number: US-B.I. PHARMACEUTICALS,INC./RIDGEFIELD-2011-BP-27578BP

PATIENT
  Sex: Female

DRUGS (7)
  1. SPIRIVA [Suspect]
     Indication: CHRONIC OBSTRUCTIVE PULMONARY DISEASE
     Dosage: 18 MCG
     Route: 055
     Dates: start: 20090101
  2. BENICAR [Concomitant]
     Indication: BLOOD PRESSURE
     Dosage: 40 MG
     Route: 048
     Dates: start: 20050101
  3. PROAIR HFA [Concomitant]
     Indication: DYSPNOEA
     Dosage: 90 MG
     Route: 055
     Dates: start: 20050101
  4. ADVAIR DISKUS 100/50 [Concomitant]
     Indication: DYSPNOEA
     Route: 055
     Dates: start: 20050101
  5. ASPIRIN [Concomitant]
     Indication: ANTICOAGULANT THERAPY
     Dosage: 81 MG
     Route: 048
     Dates: start: 19960101
  6. XANAX [Concomitant]
     Indication: ANXIETY
     Dosage: 0.5 MG
     Route: 048
     Dates: start: 20100101
  7. ALBUTEROL [Concomitant]
     Indication: DYSPNOEA
     Route: 055
     Dates: start: 20050101

REACTIONS (1)
  - DYSPNOEA [None]
